FAERS Safety Report 5164522-0 (Version None)
Quarter: 2006Q4

REPORT INFORMATION
  Report Type: 
  Country: None (occurrence: None)
  Receive Date: 20061205
  Receipt Date: 20061122
  Transmission Date: 20070319
  Serious: Yes (Other)
  Sender: FDA-Public Use
  Company Number: PHBS2006JP18340

PATIENT
  Age: 9 Year
  Sex: Male

DRUGS (2)
  1. CYCLOSPORINE [Suspect]
     Indication: UNRELATED DONOR BONE MARROW TRANSPLANTATION THERAPY
     Route: 065
     Dates: start: 19980201
  2. METHOTREXATE [Concomitant]
     Indication: UNRELATED DONOR BONE MARROW TRANSPLANTATION THERAPY
     Route: 042
     Dates: start: 19980201

REACTIONS (4)
  - BILE DUCT STONE [None]
  - CYTOMEGALOVIRUS VIRAEMIA [None]
  - GRAFT VERSUS HOST DISEASE [None]
  - TOXIC INDUCED ENCEPHALOPATHY [None]
